FAERS Safety Report 13522242 (Version 8)
Quarter: 2017Q4

REPORT INFORMATION
  Report Type: Spontaneous
  Country: US (occurrence: US)
  Receive Date: 20170508
  Receipt Date: 20171110
  Transmission Date: 20180320
  Serious: Yes (Other)
  Sender: FDA-Public Use
  Company Number: US-INCYTE CORPORATION-2017IN003319

PATIENT

DRUGS (5)
  1. MULTIVITAMIN                       /07504101/ [Concomitant]
     Active Substance: VITAMINS
     Indication: PRODUCT USED FOR UNKNOWN INDICATION
  2. JAKAFI [Suspect]
     Active Substance: RUXOLITINIB
     Dosage: 5 MG, BID (TWICE DAILY)
     Route: 048
     Dates: start: 20170421
  3. OMEPRAZOLE. [Concomitant]
     Active Substance: OMEPRAZOLE
     Indication: PRODUCT USED FOR UNKNOWN INDICATION
  4. JAKAFI [Suspect]
     Active Substance: RUXOLITINIB
     Indication: MYELOFIBROSIS
     Dosage: 20 MG, BID
     Route: 048
     Dates: start: 20170403, end: 20170420
  5. LISINOPRIL/HCTZ [Concomitant]
     Active Substance: HYDROCHLOROTHIAZIDE\LISINOPRIL
     Indication: PRODUCT USED FOR UNKNOWN INDICATION

REACTIONS (20)
  - Diarrhoea [Unknown]
  - Dizziness [Not Recovered/Not Resolved]
  - Intracranial aneurysm [Unknown]
  - Abdominal discomfort [Unknown]
  - Abdominal distension [Unknown]
  - Presyncope [Unknown]
  - Blood count abnormal [Unknown]
  - Malaise [Unknown]
  - Fatigue [Not Recovered/Not Resolved]
  - Flatulence [Unknown]
  - Abdominal pain upper [Unknown]
  - Drug dose omission [Unknown]
  - Dysgeusia [Not Recovered/Not Resolved]
  - Parosmia [Unknown]
  - Sensory disturbance [Unknown]
  - Abdominal pain [Unknown]
  - Red blood cell count decreased [Unknown]
  - Splenomegaly [Unknown]
  - Peripheral swelling [Not Recovered/Not Resolved]
  - Haemoglobin decreased [Unknown]

NARRATIVE: CASE EVENT DATE: 2017
